FAERS Safety Report 13334189 (Version 1)
Quarter: 2017Q1

REPORT INFORMATION
  Report Type: Spontaneous
  Country: US (occurrence: US)
  Receive Date: 20170314
  Receipt Date: 20170314
  Transmission Date: 20170428
  Serious: No
  Sender: FDA-Public Use
  Company Number: US-JNJFOC-20170106905

PATIENT
  Age: 60 Year
  Sex: Male

DRUGS (12)
  1. LEVOTHYROXINE. [Concomitant]
     Active Substance: LEVOTHYROXINE
  2. CALCIUM [Concomitant]
     Active Substance: CALCIUM
  3. METOPROLOL. [Concomitant]
     Active Substance: METOPROLOL
  4. FUROSEMIDE. [Concomitant]
     Active Substance: FUROSEMIDE
  5. PEPCID [Concomitant]
     Active Substance: FAMOTIDINE
  6. FLUOXETINE [Concomitant]
     Active Substance: FLUOXETINE HYDROCHLORIDE
  7. PREDNISONE. [Concomitant]
     Active Substance: PREDNISONE
  8. IMBRUVICA [Suspect]
     Active Substance: IBRUTINIB
     Indication: PRODUCT USED FOR UNKNOWN INDICATION
     Dates: start: 20161007
  9. POTASSIUM CHLORIDE. [Concomitant]
     Active Substance: POTASSIUM CHLORIDE
  10. ACYCLOVIR. [Concomitant]
     Active Substance: ACYCLOVIR
  11. WARFARIN [Concomitant]
     Active Substance: WARFARIN
  12. GLICLAZIDE [Concomitant]
     Active Substance: GLICLAZIDE

REACTIONS (2)
  - Incorrect dose administered [Recovered/Resolved]
  - Off label use [Recovered/Resolved]

NARRATIVE: CASE EVENT DATE: 20161007
